FAERS Safety Report 9668952 (Version 1)
Quarter: 2013Q4

REPORT INFORMATION
  Report Type: Spontaneous
  Country: US (occurrence: None)
  Receive Date: 20131104
  Receipt Date: 20131104
  Transmission Date: 20140711
  Serious: Yes (Life-Threatening, Hospitalization)
  Sender: FDA-Public Use
  Company Number: None

PATIENT
  Age: 35 Year
  Sex: Male
  Weight: 83.92 kg

DRUGS (1)
  1. LIDOCAINE [Suspect]
     Indication: SURGERY
     Dates: start: 20130927, end: 20130927

REACTIONS (2)
  - Pulmonary embolism [None]
  - Product contamination [None]
